FAERS Safety Report 8934663 (Version 2)
Quarter: 2012Q4

REPORT INFORMATION
  Report Type: 
  Country: NL (occurrence: NL)
  Receive Date: 20121129
  Receipt Date: 20121219
  Transmission Date: 20130627
  Serious: Yes (Hospitalization)
  Sender: FDA-Public Use
  Company Number: NL-VERTEX PHARMACEUTICAL INC.-2012-025323

PATIENT
  Sex: Male

DRUGS (3)
  1. INCIVO [Suspect]
     Indication: PRODUCT USED FOR UNKNOWN INDICATION
     Dosage: Dosage Form: Tablet
     Route: 048
  2. PEG INTERFERON [Suspect]
     Indication: PRODUCT USED FOR UNKNOWN INDICATION
     Route: 065
  3. RIBAVIRIN [Suspect]
     Indication: PRODUCT USED FOR UNKNOWN INDICATION
     Route: 065

REACTIONS (5)
  - Anaemia [Unknown]
  - Rash [Unknown]
  - Pruritus [Unknown]
  - Retinopathy [Unknown]
  - Adverse event [Unknown]
